FAERS Safety Report 23977144 (Version 3)
Quarter: 2025Q1

REPORT INFORMATION
  Report Type: Report from Study
  Country: CA (occurrence: CA)
  Receive Date: 20240614
  Receipt Date: 20250204
  Transmission Date: 20250409
  Serious: No
  Sender: JOHNSON AND JOHNSON
  Company Number: CA-JNJFOC-20240577884

PATIENT
  Age: 37 Year
  Sex: Female
  Weight: 76.2 kg

DRUGS (6)
  1. STELARA [Suspect]
     Active Substance: USTEKINUMAB
     Indication: Psoriasis
     Dosage: 45.00 MG / 0.50 ML
     Route: 058
     Dates: start: 20170526
  2. STELARA [Suspect]
     Active Substance: USTEKINUMAB
     Dosage: 45.00 MG / 0.50 ML
     Route: 058
  3. ZENHALE [Concomitant]
     Active Substance: FORMOTEROL FUMARATE\MOMETASONE FUROATE
  4. FERROUS FUMARATE [Concomitant]
     Active Substance: FERROUS FUMARATE
  5. LIPITOR [Concomitant]
     Active Substance: ATORVASTATIN CALCIUM
  6. ETROXIN [Concomitant]

REACTIONS (2)
  - Product dose omission issue [Unknown]
  - Device issue [Unknown]
